FAERS Safety Report 5751094-2 (Version None)
Quarter: 2008Q2

REPORT INFORMATION
  Report Type: 
  Country: None (occurrence: None)
  Receive Date: 20080528
  Receipt Date: 20080526
  Transmission Date: 20081010
  Serious: Yes (Death, Hospitalization)
  Sender: FDA-Public Use
  Company Number: CL-SANOFI-SYNTHELABO-D01200803288

PATIENT
  Sex: Male
  Weight: 64 kg

DRUGS (6)
  1. ALPRAZOLAM [Concomitant]
  2. LIPITROPIC [Concomitant]
  3. LEUCOVORIN CALCIUM [Suspect]
     Route: 042
     Dates: start: 20080416, end: 20080416
  4. FLUOROURACIL [Suspect]
     Dosage: 400 MG/M?, IV BOLUS D1+D2 FOLLOWED BY 5-FU 2400 MG/M? OVER 46-HOUR CONTINUOUS INFUSION.
     Route: 042
     Dates: start: 20080416, end: 20080416
  5. OXALIPLATIN [Suspect]
     Route: 042
     Dates: start: 20080416, end: 20080416
  6. SR57746 OR PLACEBO [Suspect]
     Route: 048
     Dates: start: 20071129, end: 20080430

REACTIONS (1)
  - SYSTEMIC INFLAMMATORY RESPONSE SYNDROME [None]
